FAERS Safety Report 7638393-4 (Version None)
Quarter: 2011Q3

REPORT INFORMATION
  Report Type: 
  Country: None (occurrence: None)
  Receive Date: 20110720
  Receipt Date: 20110704
  Transmission Date: 20111222
  Serious: Yes (Other)
  Sender: FDA-Public Use
  Company Number: AUR-APL-2011-03948

PATIENT
  Sex: Male

DRUGS (4)
  1. WARFARIN SODIUM [Concomitant]
  2. ASPIRIN [Concomitant]
  3. SIMVASTATIN [Suspect]
     Indication: ACUTE MYOCARDIAL INFARCTION
     Dosage: ORAL
     Route: 048
     Dates: start: 19880101, end: 19880101
  4. SIMVASTATIN [Suspect]
     Indication: ACUTE MYOCARDIAL INFARCTION
     Dosage: ORAL
     Route: 048
     Dates: start: 20000101

REACTIONS (6)
  - SEXUAL DYSFUNCTION [None]
  - ACUTE MYOCARDIAL INFARCTION [None]
  - INSOMNIA [None]
  - MUSCLE SPASMS [None]
  - SUICIDAL IDEATION [None]
  - ABNORMAL BEHAVIOUR [None]
